FAERS Safety Report 25550807 (Version 1)
Quarter: 2025Q3

REPORT INFORMATION
  Report Type: Spontaneous
  Country: US (occurrence: US)
  Receive Date: 20250714
  Receipt Date: 20250714
  Transmission Date: 20251021
  Serious: No
  Sender: INTRA-CELLULAR THERAPIES
  Company Number: US-INTRA-CELLULAR THERAPIES, INC.-2025ICT00612

PATIENT
  Sex: Female

DRUGS (6)
  1. CAPLYTA [Suspect]
     Active Substance: LUMATEPERONE
     Indication: Bipolar II disorder
  2. CAPLYTA [Suspect]
     Active Substance: LUMATEPERONE
  3. CAPLYTA [Suspect]
     Active Substance: LUMATEPERONE
  4. CAPLYTA [Suspect]
     Active Substance: LUMATEPERONE
  5. CAPLYTA [Suspect]
     Active Substance: LUMATEPERONE
  6. UNSPECIFIED SELECTIVE SEROTONIN REUPTAKE INHIBITOR (SSRI) [Concomitant]

REACTIONS (3)
  - Hypotension [Unknown]
  - Therapeutic product effect incomplete [Recovered/Resolved]
  - Dizziness [Unknown]
